FAERS Safety Report 4353416-6 (Version None)
Quarter: 2004Q2

REPORT INFORMATION
  Report Type: 
  Country: None (occurrence: None)
  Receive Date: 20040504
  Receipt Date: 20040504
  Transmission Date: 20050107
  Serious: Yes (Hospitalization)
  Sender: FDA-Public Use
  Company Number: None

PATIENT
  Age: 69 Year
  Sex: Male
  Weight: 88.905 kg

DRUGS (8)
  1. PHENYTOIN [Suspect]
     Indication: CONVULSION
     Dosage: 200 MG ORAL
     Route: 048
     Dates: start: 20040205, end: 20040219
  2. CALCITRIOL [Concomitant]
  3. CALCIUM ACETATE [Concomitant]
  4. FUROSEMIDE [Concomitant]
  5. TERAZOSIN HCL [Concomitant]
  6. ALBUTEROL [Concomitant]
  7. THIAMINE [Concomitant]
  8. MAGNESIUMOXICDE [Concomitant]

REACTIONS (2)
  - GAIT DISTURBANCE [None]
  - NYSTAGMUS [None]
